FAERS Safety Report 7952766-1 (Version None)
Quarter: 2011Q4

REPORT INFORMATION
  Report Type: 
  Country: None (occurrence: None)
  Receive Date: 20111129
  Receipt Date: 20111116
  Transmission Date: 20120403
  Serious: Yes (Hospitalization)
  Sender: FDA-Public Use
  Company Number: NGX_00393_2011

PATIENT
  Sex: Female
  Weight: 91.4 kg

DRUGS (9)
  1. QUTENZA [Suspect]
     Indication: NEUROPATHY PERIPHERAL
     Dosage: (DF TOPICAL)
     Route: 061
     Dates: start: 20110302, end: 20110302
  2. REFLEX SYMPATHETIC DYSTROPHY (COMPLEX REGIONAL PAIN SYNDROME) [Concomitant]
  3. TEICOPLANIN [Concomitant]
  4. GENTAMICIN [Concomitant]
  5. COMPLEX REGIONAL PAIN SYNDROME [Concomitant]
  6. LIDOCAINE [Concomitant]
  7. PERIPHERAL NEUROPATHIC PAIN (NEUROPATHY PERIPHERAL) [Concomitant]
  8. TRAMADOL HCL [Concomitant]
  9. LYRICA [Concomitant]

REACTIONS (1)
  - INFUSION SITE PAIN [None]
